FAERS Safety Report 5421449-4 (Version None)
Quarter: 2007Q3

REPORT INFORMATION
  Report Type: 
  Country: None (occurrence: None)
  Receive Date: 20070821
  Receipt Date: 20070816
  Transmission Date: 20080115
  Serious: Yes (Death)
  Sender: FDA-Public Use
  Company Number: JP-BOEHRINGER INGELHEIM PHARMACEUTICALS, INC.-2007-BP-17965NB

PATIENT
  Sex: Female
  Weight: 64 kg

DRUGS (6)
  1. SPIRIVA [Suspect]
     Indication: EMPHYSEMA
     Route: 055
     Dates: start: 20070409, end: 20070422
  2. NITROGLYCERIN [Concomitant]
     Indication: ANGINA PECTORIS
     Route: 062
     Dates: start: 20070326, end: 20070422
  3. RHYTHMY (RILMAZAFONE HYDROCHLORIDE) [Concomitant]
     Indication: INSOMNIA
     Route: 048
     Dates: start: 20070421, end: 20070422
  4. FLUTIDE: DISKUS (FLUTICASONE PROPIONATE) [Concomitant]
     Indication: ASTHMA
     Route: 055
     Dates: start: 20070329, end: 20070422
  5. SOLU-CORTEF [Concomitant]
     Dates: start: 20070326
  6. PREDNISOLONE [Concomitant]
     Route: 048
     Dates: start: 20060327

REACTIONS (1)
  - DEATH [None]
